FAERS Safety Report 8014447-8 (Version None)
Quarter: 2011Q4

REPORT INFORMATION
  Report Type: 
  Country: None (occurrence: None)
  Receive Date: 20111229
  Receipt Date: 20111221
  Transmission Date: 20120403
  Serious: Yes (Other)
  Sender: FDA-Public Use
  Company Number: PHHY2011ES111277

PATIENT
  Age: 52 Year
  Sex: Female

DRUGS (1)
  1. ATENOLOL [Suspect]
     Indication: HYPERTENSION
     Dosage: 50 MG, Q12H
     Route: 048
     Dates: start: 20111018, end: 20111116

REACTIONS (4)
  - PRURITUS [None]
  - DIZZINESS [None]
  - HYPOAESTHESIA [None]
  - DIARRHOEA [None]
